FAERS Safety Report 6348231-8 (Version None)
Quarter: 2009Q3

REPORT INFORMATION
  Report Type: 
  Country: None (occurrence: None)
  Receive Date: 20090910
  Receipt Date: 20090908
  Transmission Date: 20100115
  Serious: Yes (Other)
  Sender: FDA-Public Use
  Company Number: GB-MERCK-0611USA01234

PATIENT
  Age: 54 Year
  Sex: Male

DRUGS (4)
  1. PRINIVIL [Suspect]
     Indication: HYPERTENSION
     Route: 048
     Dates: start: 20000101, end: 20060930
  2. ATORVASTATIN CALCIUM [Concomitant]
     Indication: BLOOD CHOLESTEROL INCREASED
     Route: 048
     Dates: start: 20060927, end: 20060930
  3. OMEPRAZOLE [Concomitant]
     Route: 048
     Dates: start: 20060927
  4. WARFARIN [Concomitant]
     Indication: ATRIAL FIBRILLATION
     Route: 048

REACTIONS (3)
  - LIP SWELLING [None]
  - OEDEMA GENITAL [None]
  - OEDEMA PERIPHERAL [None]
